FAERS Safety Report 4539329-5 (Version None)
Quarter: 2004Q4

REPORT INFORMATION
  Report Type: 
  Country: None (occurrence: None)
  Receive Date: 20041227
  Receipt Date: 20041227
  Transmission Date: 20050328
  Serious: Yes (Life-Threatening, Hospitalization)
  Sender: FDA-Public Use
  Company Number: None

PATIENT
  Age: 40 Year
  Sex: Female
  Weight: 58.9676 kg

DRUGS (6)
  1. ACUTE COLD AND FLU FORMULA LIQUID    BURIED TREASURE BRAND [Suspect]
     Indication: NASOPHARYNGITIS
     Dosage: 2-3 TSP   2-3 X PER DAY ORAL
     Route: 048
     Dates: start: 20041102, end: 20041120
  2. ACUTE COLD AND FLU FORMULA LIQUID    BURIED TREASURE BRAND [Suspect]
     Indication: PROPHYLAXIS
     Dosage: 2-3 TSP   2-3 X PER DAY ORAL
     Route: 048
     Dates: start: 20041102, end: 20041120
  3. IMMU 911  SUPPLEMENT  SUPRALIFE INTERNATIONAL [Suspect]
     Dosage: 1-2 TAB  2XPER DAY ORAL
     Route: 048
     Dates: start: 20041102, end: 20041120
  4. POTASSIUM SUPPLEMENTS [Concomitant]
  5. CORTISOL [Concomitant]
  6. THYROGEN [Concomitant]

REACTIONS (3)
  - ANXIETY [None]
  - ARRHYTHMIA [None]
  - TACHYCARDIA [None]
